FAERS Safety Report 7681091-1 (Version None)
Quarter: 2011Q3

REPORT INFORMATION
  Report Type: 
  Country: None (occurrence: None)
  Receive Date: 20110812
  Receipt Date: 20110810
  Transmission Date: 20111222
  Serious: No
  Sender: FDA-Public Use
  Company Number: US-PFIZER INC-2011184051

PATIENT
  Sex: Male

DRUGS (2)
  1. LYRICA [Suspect]
     Indication: BACK PAIN
     Dosage: UNK
     Dates: end: 20110810
  2. LYRICA [Suspect]
     Indication: GROIN PAIN

REACTIONS (4)
  - EJACULATION DISORDER [None]
  - SKIN LESION [None]
  - SOMNOLENCE [None]
  - WEIGHT INCREASED [None]
